FAERS Safety Report 24665019 (Version 2)
Quarter: 2024Q4

REPORT INFORMATION
  Report Type: Spontaneous
  Country: IT (occurrence: IT)
  Receive Date: 20241126
  Receipt Date: 20241202
  Transmission Date: 20250115
  Serious: Yes (Life-Threatening, Hospitalization, Other)
  Sender: PFIZER
  Company Number: None

PATIENT
  Age: 75 Year
  Sex: Female
  Weight: 64 kg

DRUGS (1)
  1. CARBOPLATIN [Suspect]
     Active Substance: CARBOPLATIN
     Indication: Uterine cancer
     Dosage: CHEMOTHERAPY CYCLE WITH CARBOPLATIN-TAXOL EVERY 21 DAYS
     Route: 042
     Dates: start: 20241112, end: 20241112

REACTIONS (7)
  - Oral discomfort [Recovered/Resolved]
  - Anal sphincter hypertonia [Recovered/Resolved]
  - Hypoxia [Recovered/Resolved]
  - Blood pressure immeasurable [Recovered/Resolved]
  - Foaming at mouth [Recovered/Resolved]
  - Loss of consciousness [Recovered/Resolved]
  - Off label use [Unknown]

NARRATIVE: CASE EVENT DATE: 20241112
